FAERS Safety Report 7875674-3 (Version None)
Quarter: 2011Q4

REPORT INFORMATION
  Report Type: 
  Country: None (occurrence: None)
  Receive Date: 20111031
  Receipt Date: 20111026
  Transmission Date: 20120403
  Serious: Yes (Life-Threatening, Hospitalization)
  Sender: FDA-Public Use
  Company Number: US-JNJFOC-20110610526

PATIENT
  Sex: Male
  Weight: 82.1 kg

DRUGS (3)
  1. ZYTIGA [Suspect]
     Indication: PROSTATE CANCER METASTATIC
     Route: 048
     Dates: start: 20110613, end: 20110617
  2. THYROID TAB [Concomitant]
     Indication: THYROID DISORDER
     Route: 048
  3. CRESTOR [Concomitant]
     Indication: BLOOD CHOLESTEROL
     Route: 048

REACTIONS (11)
  - CARDIAC DISORDER [None]
  - INAPPROPRIATE SCHEDULE OF DRUG ADMINISTRATION [None]
  - DYSPHEMIA [None]
  - DYSARTHRIA [None]
  - TREMOR [None]
  - ATRIAL FIBRILLATION [None]
  - METABOLIC DISORDER [None]
  - DYSKINESIA [None]
  - MALAISE [None]
  - DYSGRAPHIA [None]
  - SLEEP TALKING [None]
